FAERS Safety Report 6575625-8 (Version None)
Quarter: 2010Q1

REPORT INFORMATION
  Report Type: 
  Country: None (occurrence: None)
  Receive Date: 20100209
  Receipt Date: 20100129
  Transmission Date: 20100710
  Serious: Yes (Hospitalization)
  Sender: FDA-Public Use
  Company Number: B0631862A

PATIENT
  Sex: Male

DRUGS (4)
  1. PAROXETINE HCL [Suspect]
     Indication: DEPRESSION
     Dosage: 10MG ALTERNATE DAYS
     Route: 048
     Dates: start: 20091201, end: 20091213
  2. ENTACT [Suspect]
     Indication: DEPRESSION
     Dosage: 5DROP PER DAY
     Route: 048
     Dates: start: 20090505, end: 20091213
  3. RAMIPRIL [Concomitant]
  4. UNKNOWN [Concomitant]

REACTIONS (2)
  - BLOOD PRESSURE DIASTOLIC INCREASED [None]
  - MUSCLE CONTRACTIONS INVOLUNTARY [None]
